FAERS Safety Report 18771418 (Version 1)
Quarter: 2021Q1

REPORT INFORMATION
  Report Type: Spontaneous
  Country: US (occurrence: US)
  Receive Date: 20210121
  Receipt Date: 20210121
  Transmission Date: 20210419
  Serious: No
  Sender: FDA-Public Use
  Company Number: US-PERRIGO-19US016143

PATIENT
  Age: 61 Year
  Sex: Female
  Weight: 83.9 kg

DRUGS (3)
  1. IBUPROFEN. [Suspect]
     Active Substance: IBUPROFEN
     Indication: PYREXIA
     Dosage: 1000 MG, SINGLE
     Route: 048
     Dates: start: 20191223, end: 20191223
  2. IBUPROFEN. [Suspect]
     Active Substance: IBUPROFEN
     Indication: COUGH
  3. IBUPROFEN. [Suspect]
     Active Substance: IBUPROFEN
     Indication: OROPHARYNGEAL PAIN

REACTIONS (3)
  - Expired product administered [Recovered/Resolved]
  - Off label use [Recovered/Resolved]
  - Incorrect dose administered [Recovered/Resolved]

NARRATIVE: CASE EVENT DATE: 20191223
